FAERS Safety Report 18077460 (Version 1)
Quarter: 2020Q3

REPORT INFORMATION
  Report Type: Spontaneous
  Country: HR (occurrence: HR)
  Receive Date: 20200728
  Receipt Date: 20200728
  Transmission Date: 20201103
  Serious: Yes (Other)
  Sender: FDA-Public Use
  Company Number: HR-ALKEM LABORATORIES LIMITED-HR-ALKEM-2019-10642

PATIENT
  Sex: Female

DRUGS (2)
  1. CO?AMOXICLAV [Suspect]
     Active Substance: AMOXICILLIN\CLAVULANATE POTASSIUM
     Indication: PYREXIA
     Dosage: UNK
     Route: 048
  2. CEFUROXIME AXETIL. [Suspect]
     Active Substance: CEFUROXIME AXETIL
     Indication: PYREXIA
     Dosage: UNK
     Route: 048

REACTIONS (1)
  - Drug ineffective [Unknown]
